FAERS Safety Report 8521804-X (Version None)
Quarter: 2012Q3

REPORT INFORMATION
  Report Type: 
  Country: None (occurrence: None)
  Receive Date: 20120719
  Receipt Date: 20120330
  Transmission Date: 20120928
  Serious: Yes (Death)
  Sender: FDA-Public Use
  Company Number: US-BRISTOL-MYERS SQUIBB COMPANY-16490815

PATIENT
  Age: 45 Year
  Sex: Male

DRUGS (2)
  1. ZOMETA [Concomitant]
     Dosage: INJECTION
  2. YERVOY [Suspect]
     Indication: MALIGNANT MELANOMA
     Dosage: NO OF INF:1,CONTRA NUMBER: 917348
     Dates: start: 20111213, end: 20120112

REACTIONS (1)
  - NEOPLASM MALIGNANT [None]
